FAERS Safety Report 19998258 (Version 2)
Quarter: 2022Q1

REPORT INFORMATION
  Report Type: Spontaneous
  Country: US (occurrence: US)
  Receive Date: 20211026
  Receipt Date: 20220125
  Transmission Date: 20220423
  Serious: Yes (Other)
  Sender: FDA-Public Use
  Company Number: US-EXELIXIS-CABO-21042999

PATIENT
  Age: 59 Year
  Sex: Male

DRUGS (2)
  1. OPDIVO [Suspect]
     Active Substance: NIVOLUMAB
     Indication: Product used for unknown indication
     Dosage: UNK
     Route: 065
  2. CABOMETYX [Suspect]
     Active Substance: CABOZANTINIB S-MALATE
     Indication: Metastases to bone
     Dosage: 40 MILLIGRAM, QD
     Route: 065
     Dates: start: 202103

REACTIONS (13)
  - Rectal haemorrhage [Recovering/Resolving]
  - Paraesthesia oral [Unknown]
  - Skin irritation [Recovering/Resolving]
  - Cheilitis [Unknown]
  - Blister [Unknown]
  - Back pain [Unknown]
  - Taste disorder [Unknown]
  - Diarrhoea [Unknown]
  - Rash [Unknown]
  - Fatigue [Unknown]
  - Stomatitis [Unknown]
  - Blood pressure increased [Unknown]
  - Glossitis [Unknown]

NARRATIVE: CASE EVENT DATE: 20210815
